FAERS Safety Report 6012733-4 (Version None)
Quarter: 2008Q4

REPORT INFORMATION
  Report Type: 
  Country: None (occurrence: None)
  Receive Date: 20081217
  Receipt Date: 20081202
  Transmission Date: 20090506
  Serious: Yes (Hospitalization)
  Sender: FDA-Public Use
  Company Number: JPI-P-005461

PATIENT
  Age: 18 Year
  Sex: Female

DRUGS (8)
  1. LUVOX IR                  (FLUVOXAMINE MELEATE) [Suspect]
     Indication: DEPRESSION
     Dosage: ( 50 MG,1 D), ORAL
     Route: 048
     Dates: start: 20070626, end: 20070717
  2. AMOXAPINE [Suspect]
     Indication: DEPRESSION
     Dosage: (25 MG,1 D), ORAL
     Route: 048
     Dates: start: 20070626, end: 20070717
  3. IRSOGLADINE MALEATE [Suspect]
     Indication: GASTRIC ULCER
     Dosage: (4 MG, 1 D), ORAL
     Route: 048
     Dates: start: 20070626, end: 20070717
  4. FLUDIAZEPAM [Suspect]
     Indication: DEPRESSION
     Dosage: 90/75 MG, 1 D), ORAL
     Route: 048
     Dates: start: 20070626, end: 20070717
  5. FLUNITRAZEPAM [Suspect]
     Indication: DEPRESSION
     Dosage: (1 MG,1 D), ORAL
     Route: 048
     Dates: start: 20070709, end: 20070717
  6. QUETIAPINE FUMARATE [Suspect]
     Indication: DEPRESSION
     Dosage: 9150 MG,1 D), ORAL
     Route: 048
     Dates: start: 20070709, end: 20070717
  7. ALPRAZOLAM [Suspect]
     Indication: DEPRESSION
     Dosage: (2.4 MG,1 D), ORAL
     Route: 048
     Dates: start: 20070710, end: 20070717
  8. QUAZEPAM [Suspect]
     Indication: DEPRESSION
     Dosage: (15 MG, 1 D), ORAL
     Route: 048
     Dates: start: 20070626, end: 20070717

REACTIONS (3)
  - BLISTER [None]
  - ERYTHEMA MULTIFORME [None]
  - PYREXIA [None]
